FAERS Safety Report 15686608 (Version 1)
Quarter: 2018Q4

REPORT INFORMATION
  Report Type: Spontaneous
  Country: ES (occurrence: ES)
  Receive Date: 20181204
  Receipt Date: 20181204
  Transmission Date: 20190205
  Serious: Yes (Hospitalization, Other)
  Sender: FDA-Public Use
  Company Number: PHHY2018ES173735

PATIENT
  Age: 49 Year
  Sex: Male

DRUGS (4)
  1. TACROLIMUS. [Suspect]
     Active Substance: TACROLIMUS
     Indication: IMMUNOSUPPRESSION
     Dosage: 6 MG, UNK
     Route: 048
  2. TACROLIMUS. [Suspect]
     Active Substance: TACROLIMUS
     Dosage: 10 MG, UNK
     Route: 048
  3. TACROLIMUS. [Suspect]
     Active Substance: TACROLIMUS
     Dosage: 9 MG, UNK
     Route: 048
  4. TACROLIMUS. [Suspect]
     Active Substance: TACROLIMUS
     Dosage: 8 MG, UNK
     Route: 048

REACTIONS (4)
  - Diabetes mellitus [Recovering/Resolving]
  - Transplant rejection [Recovered/Resolved]
  - Tremor [Recovered/Resolved]
  - Hepatitis C [Recovering/Resolving]

NARRATIVE: CASE EVENT DATE: 20180925
